FAERS Safety Report 8984675 (Version 2)
Quarter: 2013Q1

REPORT INFORMATION
  Report Type: Spontaneous
  Country: US (occurrence: None)
  Receive Date: 20121218
  Receipt Date: 20130104
  Transmission Date: 20140127
  Serious: Yes (Death, Hospitalization)
  Sender: FDA-Public Use
  Company Number: 2012ST000755

PATIENT
  Age: 83 Year
  Sex: Male

DRUGS (1)
  1. MATULANE CAPSULES [Suspect]
     Indication: LYMPHOMA
     Route: 048
     Dates: start: 20121113

REACTIONS (3)
  - Dyspnoea [None]
  - Dehydration [None]
  - Effusion [None]
